FAERS Safety Report 20455152 (Version 2)
Quarter: 2022Q1

REPORT INFORMATION
  Report Type: Spontaneous
  Country: US (occurrence: US)
  Receive Date: 20220210
  Receipt Date: 20220217
  Transmission Date: 20220423
  Serious: Yes (Life-Threatening, Hospitalization)
  Sender: FDA-Public Use
  Company Number: US-PFIZER INC-202200176468

PATIENT
  Age: 63 Year
  Sex: Female
  Weight: 92.5 kg

DRUGS (6)
  1. XANAX [Suspect]
     Active Substance: ALPRAZOLAM
     Dosage: 0.5 MG, DAILY (48 TABLETS DAILY)
     Dates: end: 20001213
  2. VICODIN [Suspect]
     Active Substance: ACETAMINOPHEN\HYDROCODONE BITARTRATE
     Indication: Pain
     Dosage: UNK, (650MG/7.5 MG TABLETS, 8 TABLETS A DAY)
  3. VICODIN [Suspect]
     Active Substance: ACETAMINOPHEN\HYDROCODONE BITARTRATE
     Dosage: UNK, DAILY ((ACETAMINOPHEN 650 MG/HYDROCODONE 7.5 MG) UP TO 75 TABLETS DAILY)
     Dates: end: 20001213
  4. DALMANE [Suspect]
     Active Substance: FLURAZEPAM HYDROCHLORIDE
     Dosage: 30 MG, DAILY (UP TO 10 CAPSULES DAILY)
     Dates: end: 20001213
  5. BUSPAR [Suspect]
     Active Substance: BUSPIRONE HYDROCHLORIDE
     Dosage: 10 MG, DAILY (6 TABLETS DAILY)
     Dates: end: 20001213
  6. PROZAC [Concomitant]
     Active Substance: FLUOXETINE HYDROCHLORIDE
     Dosage: UNK

REACTIONS (15)
  - Intentional overdose [Recovered/Resolved]
  - Acute hepatic failure [Not Recovered/Not Resolved]
  - Acute kidney injury [Recovered/Resolved]
  - Suicide attempt [Recovered/Resolved]
  - Pulmonary oedema [Recovered/Resolved]
  - Pneumothorax [Recovered/Resolved]
  - Urinary tract candidiasis [Recovered/Resolved]
  - Respiratory tract infection [Recovered/Resolved]
  - Hypothermia [Unknown]
  - Coma [Unknown]
  - Fatigue [Unknown]
  - Decreased appetite [Unknown]
  - Nausea [Unknown]
  - Vomiting [Unknown]
  - Malaise [Unknown]

NARRATIVE: CASE EVENT DATE: 20001210
